FAERS Safety Report 4830400-7 (Version None)
Quarter: 2005Q4

REPORT INFORMATION
  Report Type: 
  Country: None (occurrence: None)
  Receive Date: 20051117
  Receipt Date: 20051108
  Transmission Date: 20060501
  Serious: Yes (Hospitalization)
  Sender: FDA-Public Use
  Company Number: FR-SANOFI-SYNTHELABO-F01200502368

PATIENT
  Sex: Male

DRUGS (5)
  1. OXALIPLATIN [Suspect]
     Indication: PANCREATIC CARCINOMA
     Route: 042
     Dates: start: 20050502, end: 20050502
  2. FLUOROURACIL [Suspect]
     Dosage: 250 MG/M2/DAY, 7 DAYS A WEEK FOR 5 WEEK
     Route: 042
  3. RADIOTHERAPY [Concomitant]
     Dosage: 55 GY OVER 5 WEEKS
  4. DURAGESIC-100 [Concomitant]
  5. MORPHINE SULFATE [Concomitant]

REACTIONS (18)
  - ABDOMINAL PAIN [None]
  - ASCITES [None]
  - ASTHENIA [None]
  - BILIARY ANASTOMOSIS [None]
  - BILIARY DILATATION [None]
  - COLITIS ISCHAEMIC [None]
  - DEHYDRATION [None]
  - DIARRHOEA [None]
  - GENERAL PHYSICAL HEALTH DETERIORATION [None]
  - HYPONATRAEMIA [None]
  - HYPOTENSION [None]
  - NEUTROPENIA [None]
  - OEDEMA [None]
  - ORAL CANDIDIASIS [None]
  - SMALL INTESTINAL ANASTOMOSIS [None]
  - THROMBOCYTOPENIA [None]
  - VOMITING [None]
  - WHITE BLOOD CELL COUNT DECREASED [None]
